FAERS Safety Report 21216355 (Version 1)
Quarter: 2022Q3

REPORT INFORMATION
  Report Type: Spontaneous
  Country: FR (occurrence: FR)
  Receive Date: 20220816
  Receipt Date: 20220816
  Transmission Date: 20221027
  Serious: Yes (Death)
  Sender: FDA-Public Use
  Company Number: FR-SUN PHARMACEUTICAL INDUSTRIES LTD-2022RR-348646

PATIENT
  Age: 90 Year
  Sex: Female
  Weight: 37 kg

DRUGS (11)
  1. VENLAFAXINE [Suspect]
     Active Substance: VENLAFAXINE HYDROCHLORIDE
     Indication: Depression
     Dosage: 75 MILLIGRAM, BID
     Route: 048
     Dates: start: 20220421
  2. MIRTAZAPINE [Suspect]
     Active Substance: MIRTAZAPINE
     Indication: Depression
     Dosage: 15 MILLIGRAM, DAILY
     Route: 048
     Dates: start: 20220505
  3. OXAZEPAM [Suspect]
     Active Substance: OXAZEPAM
     Indication: Anxiety
     Dosage: 55 MILLIGRAM, DAILY; 10 MG 3/D 50 MG 0.5/DAY
     Route: 048
     Dates: start: 20220427
  4. ELIQUIS 2,5 mg, coated tablet [Concomitant]
     Indication: Thrombosis prophylaxis
     Dosage: 2 DOSAGE FORM, BID
     Route: 048
  5. DOLIPRANE 500 mg, tablet [Concomitant]
     Indication: Pain
     Dosage: UNK
     Route: 065
  6. FUMAFER 66 mg, coated tablet [Concomitant]
     Indication: Iron deficiency anaemia
     Dosage: UNK
     Route: 065
  7. LANSOPRAZOLE VIATRIS 15 mg,  orodispersible tablets [Concomitant]
     Indication: Abdominal pain upper
     Dosage: 15 MILLIGRAM, DAILY
     Route: 048
  8. LEVOTHYROX 50 microgrammes, breakable tablet [Concomitant]
     Indication: Hypothyroidism
     Dosage: 1 DOSAGE FORM, DAILY
     Route: 048
  9. MONOPROST 50 microgrammes/ml, eye drops [Concomitant]
     Indication: Product used for unknown indication
     Dosage: UNK
     Route: 065
  10. RAMIPRIL ACTAVIS 2,5 mg, breakable tablet [Concomitant]
     Indication: Cardiovascular disorder
     Dosage: 2.5 MILLIGRAM, DAILY
     Route: 048
  11. TRANSIPEG 5,9 g, powder for oral solution in sachet [Concomitant]
     Indication: Constipation
     Dosage: UNK
     Route: 065

REACTIONS (1)
  - Fall [Fatal]

NARRATIVE: CASE EVENT DATE: 20220508
